FAERS Safety Report 9564978 (Version 7)
Quarter: 2021Q3

REPORT INFORMATION
  Report Type: Report from Study
  Country: CA (occurrence: CA)
  Receive Date: 20130930
  Receipt Date: 20210904
  Transmission Date: 20211014
  Serious: Yes (Other)
  Sender: FDA-Public Use
  Company Number: PHHY2013CA107716

PATIENT
  Age: 38 Year
  Sex: Female

DRUGS (7)
  1. TOPAMAX [Concomitant]
     Active Substance: TOPIRAMATE
     Indication: PRODUCT USED FOR UNKNOWN INDICATION
     Dosage: 50 MG, BID
     Route: 065
  2. CYMBALTA [Concomitant]
     Active Substance: DULOXETINE HYDROCHLORIDE
     Indication: PRODUCT USED FOR UNKNOWN INDICATION
     Dosage: UNK
     Route: 065
  3. GILENYA [Suspect]
     Active Substance: FINGOLIMOD HYDROCHLORIDE
     Indication: RELAPSING-REMITTING MULTIPLE SCLEROSIS
     Dosage: 0.5 MG, QD
     Route: 048
     Dates: start: 20130917, end: 20130918
  4. CIPRALEX [Suspect]
     Active Substance: ESCITALOPRAM OXALATE
     Dosage: UNK
     Route: 065
  5. CIPRALEX [Suspect]
     Active Substance: ESCITALOPRAM OXALATE
     Indication: ANXIETY
     Dosage: UNK
     Route: 065
     Dates: end: 20130913
  6. GILENYA [Suspect]
     Active Substance: FINGOLIMOD HYDROCHLORIDE
     Dosage: UNK
     Route: 048
     Dates: start: 20140304
  7. GILENYA [Suspect]
     Active Substance: FINGOLIMOD HYDROCHLORIDE
     Dosage: UNK
     Route: 048
     Dates: start: 20161011, end: 202008

REACTIONS (23)
  - Sleep disorder [Recovering/Resolving]
  - Ocular discomfort [Unknown]
  - Nasopharyngitis [Unknown]
  - Multiple sclerosis [Unknown]
  - Diplopia [Unknown]
  - Vision blurred [Unknown]
  - Neuralgia [Unknown]
  - Electric shock sensation [Recovering/Resolving]
  - Palpitations [Unknown]
  - Malaise [Unknown]
  - Dizziness [Recovering/Resolving]
  - Cough [Unknown]
  - Chills [Recovering/Resolving]
  - Drug withdrawal syndrome [Recovering/Resolving]
  - Depressed level of consciousness [Recovering/Resolving]
  - Eye pain [Unknown]
  - Visual impairment [Unknown]
  - Optic neuritis [Recovering/Resolving]
  - Depression [Unknown]
  - Headache [Unknown]
  - Optic nerve disorder [Unknown]
  - Oropharyngeal pain [Unknown]
  - Pupillary disorder [Unknown]

NARRATIVE: CASE EVENT DATE: 20140218
